FAERS Safety Report 4448952-8 (Version None)
Quarter: 2004Q3

REPORT INFORMATION
  Report Type: 
  Country: None (occurrence: None)
  Receive Date: 20040909
  Receipt Date: 20040824
  Transmission Date: 20050211
  Serious: Yes (Hospitalization)
  Sender: FDA-Public Use
  Company Number: USA040876566

PATIENT
  Age: 66 Year
  Sex: Female

DRUGS (1)
  1. HUMALOG [Suspect]
     Indication: DIABETES MELLITUS

REACTIONS (2)
  - CARDIAC PACEMAKER INSERTION [None]
  - PHARMACEUTICAL PRODUCT COMPLAINT [None]
